FAERS Safety Report 12612546 (Version 1)
Quarter: 2016Q3

REPORT INFORMATION
  Report Type: Report from Study
  Country: ES (occurrence: ES)
  Receive Date: 20160801
  Receipt Date: 20160801
  Transmission Date: 20161109
  Serious: Yes (Other)
  Sender: FDA-Public Use
  Company Number: ES-ABBVIE-16P-144-1687096-00

PATIENT
  Age: 74 Year
  Sex: Female
  Weight: 66.5 kg

DRUGS (2)
  1. VIEKIRAX [Suspect]
     Active Substance: OMBITASVIR\PARITAPREVIR\RITONAVIR
     Indication: HEPATITIS C
     Route: 048
     Dates: start: 20151109, end: 20160131
  2. EXVIERA [Suspect]
     Active Substance: DASABUVIR
     Indication: HEPATITIS C
     Route: 048
     Dates: start: 20151109, end: 20160131

REACTIONS (4)
  - Fall [Recovering/Resolving]
  - Intervertebral disc protrusion [Recovering/Resolving]
  - Spinal fracture [Recovering/Resolving]
  - Vertigo [Unknown]

NARRATIVE: CASE EVENT DATE: 201605
